FAERS Safety Report 14940298 (Version 4)
Quarter: 2020Q1

REPORT INFORMATION
  Report Type: Report from Study
  Country: GB (occurrence: GB)
  Receive Date: 20180525
  Receipt Date: 20200122
  Transmission Date: 20200409
  Serious: No
  Sender: FDA-Public Use
  Company Number: GB-SA-2017SA106720

PATIENT
  Age: 45 Year
  Sex: Female

DRUGS (4)
  1. ALEMTUZUMAB [Suspect]
     Active Substance: ALEMTUZUMAB
     Indication: RELAPSING MULTIPLE SCLEROSIS
     Dosage: 12 MG,QD
     Route: 041
     Dates: start: 20161108, end: 20161112
  2. ALEMTUZUMAB [Suspect]
     Active Substance: ALEMTUZUMAB
     Dosage: 12 MG, QD
     Route: 041
     Dates: start: 20171108, end: 20171110
  3. DOMPERIDONE [Concomitant]
     Active Substance: DOMPERIDONE
     Dosage: 10 MG, UNK
     Route: 048
     Dates: start: 201611, end: 20180420
  4. ACICLOVIR [Concomitant]
     Active Substance: ACYCLOVIR
     Dosage: 400 MG, UNK
     Route: 048
     Dates: start: 201611, end: 2016

REACTIONS (36)
  - Fibrin D dimer increased [Recovered/Resolved]
  - Non-cardiac chest pain [Recovered/Resolved]
  - Oral herpes [Recovering/Resolving]
  - Pain [Recovered/Resolved]
  - Headache [Recovered/Resolved]
  - Hypersensitivity [Recovered/Resolved]
  - Rash [Recovered/Resolved]
  - Nasopharyngitis [Recovered/Resolved]
  - Oropharyngeal spasm [Recovered/Resolved]
  - Back pain [Recovered/Resolved]
  - Multiple sclerosis relapse [Recovered/Resolved]
  - Bacterial vaginosis [Recovered/Resolved]
  - Nausea [Recovered/Resolved]
  - Rash [Recovered/Resolved]
  - Vomiting [Recovered/Resolved]
  - Pruritus [Recovered/Resolved]
  - Migraine [Recovering/Resolving]
  - Burning sensation [Recovered/Resolved]
  - Furuncle [Recovered/Resolved]
  - Nasopharyngitis [Recovered/Resolved]
  - Non-cardiac chest pain [Recovered/Resolved]
  - Dyspnoea at rest [Recovered/Resolved]
  - Tinnitus [Recovered/Resolved]
  - Arthralgia [Recovered/Resolved]
  - Nausea [Recovered/Resolved]
  - Vision blurred [Recovered/Resolved]
  - Fatigue [Recovered/Resolved]
  - Respiratory tract infection [Recovered/Resolved]
  - Rash [Recovered/Resolved]
  - Neuralgia [Recovered/Resolved]
  - Muscular weakness [Recovered/Resolved]
  - Thirst [Recovered/Resolved]
  - Non-cardiac chest pain [Recovered/Resolved]
  - Dyspnoea [Recovered/Resolved]
  - Rash [Recovered/Resolved]
  - Anaphylactic reaction [Recovered/Resolved]

NARRATIVE: CASE EVENT DATE: 201611
